FAERS Safety Report 8018629-0 (Version None)
Quarter: 2012Q1

REPORT INFORMATION
  Report Type: 
  Country: None (occurrence: None)
  Receive Date: 20120103
  Receipt Date: 20111222
  Transmission Date: 20120608
  Serious: Yes (Hospitalization)
  Sender: FDA-Public Use
  Company Number: US-US-EMD SERONO, INC.-7103433

PATIENT
  Age: 19 Year
  Sex: Female

DRUGS (4)
  1. LUPRON [Suspect]
     Indication: ASSISTED FERTILISATION
     Route: 058
  2. CETROTIDE [Suspect]
     Indication: OVULATION INDUCTION
  3. ENOXAPARIN [Concomitant]
     Indication: PRODUCT USED FOR UNKNOWN INDICATION
     Route: 058
  4. GONAL-F [Suspect]
     Indication: OVULATION INDUCTION
     Route: 058

REACTIONS (2)
  - PELVIC PAIN [None]
  - BACK PAIN [None]
